FAERS Safety Report 6212026-6 (Version None)
Quarter: 2009Q2

REPORT INFORMATION
  Report Type: 
  Country: None (occurrence: None)
  Receive Date: 20090602
  Receipt Date: 20090526
  Transmission Date: 20091009
  Serious: Yes (Other)
  Sender: FDA-Public Use
  Company Number: US-ASTRAZENECA-2009UW13244

PATIENT
  Age: 59 Year
  Sex: Female
  Weight: 105.2 kg

DRUGS (4)
  1. NEXIUM [Suspect]
     Indication: GASTROOESOPHAGEAL REFLUX DISEASE
     Route: 048
  2. IRON [Concomitant]
     Indication: BLOOD IRON DECREASED
  3. LASIX [Concomitant]
  4. ARIXTRA [Concomitant]
     Indication: ANTICOAGULANT THERAPY
     Route: 042

REACTIONS (2)
  - BLOOD IRON DECREASED [None]
  - BREAST CANCER [None]
